FAERS Safety Report 9178404 (Version 1)
Quarter: 2012Q4

REPORT INFORMATION
  Report Type: 
  Country: US (occurrence: US)
  Receive Date: 20121029
  Receipt Date: 20121029
  Transmission Date: 20130627
  Serious: Yes (Hospitalization)
  Sender: FDA-Public Use
  Company Number: US-SANOFI-AVENTIS-2012SA075846

PATIENT
  Age: 57 Year
  Sex: Female

DRUGS (5)
  1. PLAVIX [Suspect]
     Indication: PROPHYLAXIS
     Route: 048
     Dates: start: 2006, end: 2010
  2. OMEPRAZOLE [Concomitant]
  3. METFORMIN [Concomitant]
     Indication: PRE-DIABETES
  4. L-THYROXINE [Concomitant]
  5. HYDROCHLOROTHIAZIDE [Concomitant]

REACTIONS (2)
  - Coronary artery occlusion [Unknown]
  - Therapeutic response decreased [Unknown]
